FAERS Safety Report 6615907-4 (Version None)
Quarter: 2010Q1

REPORT INFORMATION
  Report Type: 
  Country: None (occurrence: None)
  Receive Date: 20100305
  Receipt Date: 20100302
  Transmission Date: 20100710
  Serious: Yes (Other)
  Sender: FDA-Public Use
  Company Number: US-ELI_LILLY_AND_COMPANY-US201003000937

PATIENT
  Sex: Male

DRUGS (6)
  1. HUMALOG [Suspect]
     Indication: DIABETES MELLITUS
  2. HUMULIN 70/30 [Suspect]
     Indication: DIABETES MELLITUS
  3. HUMULIN R [Suspect]
     Indication: DIABETES MELLITUS
  4. HUMULIN N [Suspect]
     Indication: DIABETES MELLITUS
  5. LEVEMIR [Concomitant]
  6. LANTUS [Concomitant]

REACTIONS (7)
  - BLINDNESS [None]
  - BLINDNESS UNILATERAL [None]
  - CATARACT [None]
  - DUPUYTREN'S CONTRACTURE [None]
  - EYE HAEMORRHAGE [None]
  - VISION BLURRED [None]
  - VISUAL FIELD DEFECT [None]
